FAERS Safety Report 9523577 (Version 2)
Quarter: 2013Q4

REPORT INFORMATION
  Report Type: Report from Study
  Country: FR (occurrence: FR)
  Receive Date: 20130913
  Receipt Date: 20131021
  Transmission Date: 20140711
  Serious: Yes (Death)
  Sender: FDA-Public Use
  Company Number: FR-CELGENEUS-056-C4047-13091583

PATIENT
  Age: 73 Year
  Sex: Male

DRUGS (7)
  1. CC-4047 [Suspect]
     Indication: PLASMA CELL MYELOMA
     Dosage: 3 MILLIGRAM
     Route: 048
     Dates: end: 20130610
  2. DEXAMETHASONE [Concomitant]
     Indication: PLASMA CELL MYELOMA
     Route: 065
  3. KARDEGIC [Concomitant]
     Indication: THROMBOSIS PROPHYLAXIS
     Dosage: 160 UNKNOWN
     Route: 065
     Dates: start: 20130601, end: 20130626
  4. KARDEGIC [Concomitant]
     Dosage: 75 UNKNOWN
     Route: 065
  5. SOLUMEDROL [Concomitant]
     Indication: ANALGESIC THERAPY
     Route: 041
     Dates: start: 20130601, end: 20130626
  6. INEAN [Concomitant]
     Indication: PROPHYLAXIS
     Route: 065
     Dates: start: 20130601, end: 20130626
  7. PERFALGAN [Concomitant]
     Indication: ANALGESIC THERAPY
     Route: 065
     Dates: start: 20130601, end: 20130626

REACTIONS (1)
  - Plasma cell myeloma [Fatal]
